FAERS Safety Report 11427877 (Version 2)
Quarter: 2015Q3

REPORT INFORMATION
  Report Type: Spontaneous
  Country: CA (occurrence: CA)
  Receive Date: 20150828
  Receipt Date: 20150908
  Transmission Date: 20151125
  Serious: Yes (Death)
  Sender: FDA-Public Use
  Company Number: CA-ROCHE-1627044

PATIENT
  Age: 41 Year
  Sex: Male

DRUGS (23)
  1. XOLAIR [Suspect]
     Active Substance: OMALIZUMAB
     Route: 058
     Dates: start: 20141121
  2. SPIRIVA [Concomitant]
     Active Substance: TIOTROPIUM BROMIDE MONOHYDRATE
  3. HYDRALAZINE HCL [Concomitant]
     Active Substance: HYDRALAZINE HYDROCHLORIDE
  4. HYDROMORPHONE HCL [Concomitant]
     Active Substance: HYDROMORPHONE HYDROCHLORIDE
  5. XOLAIR [Suspect]
     Active Substance: OMALIZUMAB
     Route: 058
     Dates: start: 20150522
  6. PREDNISONE. [Concomitant]
     Active Substance: PREDNISONE
  7. FLOVENT HFA [Concomitant]
     Active Substance: FLUTICASONE PROPIONATE
  8. QUETIAPINE FUMARATE. [Concomitant]
     Active Substance: QUETIAPINE FUMARATE
  9. COUMADIN [Concomitant]
     Active Substance: WARFARIN SODIUM
  10. LORAZEPAM TEVA [Concomitant]
  11. COVERSYL [Concomitant]
     Active Substance: PERINDOPRIL
  12. ACETYLSALICYLIC ACID [Concomitant]
     Active Substance: ASPIRIN
  13. MONTELUKAST SODIUM. [Concomitant]
     Active Substance: MONTELUKAST SODIUM
  14. TRAZODONE HYDROCHLORIDE. [Concomitant]
     Active Substance: TRAZODONE HYDROCHLORIDE
  15. VENTOLIN HFA [Concomitant]
     Active Substance: ALBUTEROL SULFATE
  16. ASA [Concomitant]
     Active Substance: ASPIRIN
  17. XOLAIR [Suspect]
     Active Substance: OMALIZUMAB
     Indication: ASTHMA
     Route: 058
     Dates: start: 20121218
  18. CETIRIZINE HCL [Concomitant]
     Active Substance: CETIRIZINE HYDROCHLORIDE
  19. PANTOPRAZOLE [Concomitant]
     Active Substance: PANTOPRAZOLE SODIUM
  20. SYMBICORT [Concomitant]
     Active Substance: BUDESONIDE\FORMOTEROL FUMARATE DIHYDRATE
  21. AMITRIPTYLINE HCL [Concomitant]
     Active Substance: AMITRIPTYLINE
  22. CYMBALTA [Concomitant]
     Active Substance: DULOXETINE HYDROCHLORIDE
  23. OMNARIS [Concomitant]
     Active Substance: CICLESONIDE

REACTIONS (2)
  - Procedural complication [Fatal]
  - Laryngeal disorder [Unknown]

NARRATIVE: CASE EVENT DATE: 20150728
